FAERS Safety Report 6939829-4 (Version None)
Quarter: 2010Q3

REPORT INFORMATION
  Report Type: 
  Country: None (occurrence: None)
  Receive Date: 20100825
  Receipt Date: 20100817
  Transmission Date: 20110219
  Serious: No
  Sender: FDA-Public Use
  Company Number: 2008BI016558

PATIENT
  Age: 42 Year
  Sex: Female

DRUGS (1)
  1. TYSABRI [Suspect]
     Indication: MULTIPLE SCLEROSIS
     Route: 042
     Dates: start: 20080514

REACTIONS (11)
  - ASTHMA [None]
  - COLOUR BLINDNESS ACQUIRED [None]
  - DIABETES MELLITUS [None]
  - EAR INFECTION [None]
  - FEELING ABNORMAL [None]
  - IRRITABILITY [None]
  - PAIN [None]
  - SINUSITIS [None]
  - STOMATITIS [None]
  - URINARY TRACT INFECTION [None]
  - URTICARIA [None]
